FAERS Safety Report 6353987-4 (Version None)
Quarter: 2009Q3

REPORT INFORMATION
  Report Type: 
  Country: None (occurrence: None)
  Receive Date: 20090914
  Receipt Date: 20090901
  Transmission Date: 20100115
  Serious: Yes (Other)
  Sender: FDA-Public Use
  Company Number: US-ELI_LILLY_AND_COMPANY-US200909000426

PATIENT
  Sex: Male

DRUGS (1)
  1. STRATTERA [Suspect]
     Indication: ATTENTION DEFICIT/HYPERACTIVITY DISORDER
     Dosage: 10 MG, DAILY (1/D)
     Route: 065
     Dates: start: 20090801

REACTIONS (7)
  - ABNORMAL BEHAVIOUR [None]
  - HOSTILITY [None]
  - MOOD ALTERED [None]
  - PERSONALITY CHANGE [None]
  - SOMNAMBULISM [None]
  - SOMNOLENCE [None]
  - VIOLENCE-RELATED SYMPTOM [None]
